FAERS Safety Report 16891477 (Version 4)
Quarter: 2019Q4

REPORT INFORMATION
  Report Type: Spontaneous
  Country: DE (occurrence: DE)
  Receive Date: 20191007
  Receipt Date: 20191119
  Transmission Date: 20200122
  Serious: Yes (Hospitalization, Other)
  Sender: FDA-Public Use
  Company Number: DE-MYLANLABS-2019M1092166

PATIENT
  Age: 51 Year
  Sex: Female
  Weight: 65 kg

DRUGS (13)
  1. CETUXIMAB. [Suspect]
     Active Substance: CETUXIMAB
     Indication: ADENOCARCINOMA
     Dosage: 250 MILLIGRAM/SQ. METER
     Dates: start: 20190222
  2. CIPROFLOXACIN. [Concomitant]
     Active Substance: CIPROFLOXACIN
     Indication: NEUTROPENIA
     Dosage: 500 MILLIGRAM,HALF DAY
     Route: 048
     Dates: start: 20190404
  3. FLUOROURACIL. [Suspect]
     Active Substance: FLUOROURACIL
     Indication: ADENOCARCINOMA
     Dosage: UNK
     Dates: start: 20190222
  4. AMPHO MORONAL [Concomitant]
     Active Substance: AMPHOTERICIN B
     Indication: MUCOSAL INFLAMMATION
     Dosage: 5 MG/100 ML, Q6H
     Route: 061
     Dates: start: 20190404
  5. METAMIZOL                          /06276702/ [Concomitant]
     Active Substance: METAMIZOLE
     Indication: CANCER PAIN
     Dosage: 500 MILLIGRAM, Q6H
     Route: 048
     Dates: start: 20190301
  6. MINOCYCLINE [Concomitant]
     Active Substance: MINOCYCLINE HYDROCHLORIDE
     Indication: ERYTHEMA
     Dosage: 50 MILLIGRAM (0.5 DAY)
     Route: 048
     Dates: start: 20190404
  7. FLUOROURACIL. [Suspect]
     Active Substance: FLUOROURACIL
     Indication: LIP AND/OR ORAL CAVITY CANCER
  8. GLANDOMED [Concomitant]
     Indication: MUCOSAL INFLAMMATION
     Dosage: 10 MILLILITER, Q6H
     Route: 061
     Dates: start: 20181022
  9. PANTOPRAZOLE [Concomitant]
     Active Substance: PANTOPRAZOLE
     Indication: GASTRITIS PROPHYLAXIS
     Dosage: 40 MILLIGRAM, QD
     Route: 048
     Dates: start: 20190301
  10. TRAMAL [Concomitant]
     Active Substance: TRAMADOL
     Indication: CANCER PAIN
     Dosage: 50 MILLIGRAM,HALF DAY
     Route: 048
     Dates: start: 20190304
  11. CETUXIMAB. [Suspect]
     Active Substance: CETUXIMAB
     Indication: LIP AND/OR ORAL CAVITY CANCER
     Dosage: 250 MILLIGRAM/SQ. METER
     Dates: start: 20190515
  12. CISPLATIN. [Suspect]
     Active Substance: CISPLATIN
     Indication: ADENOCARCINOMA
     Dosage: UNK
     Dates: start: 20190222
  13. CISPLATIN. [Suspect]
     Active Substance: CISPLATIN
     Indication: LIP AND/OR ORAL CAVITY CANCER

REACTIONS (5)
  - General physical health deterioration [Unknown]
  - Acute kidney injury [Recovering/Resolving]
  - Mucosal inflammation [Recovered/Resolved]
  - Weight decreased [Unknown]
  - Off label use [Unknown]

NARRATIVE: CASE EVENT DATE: 2019
